FAERS Safety Report 9012508 (Version 2)
Quarter: 2013Q1

REPORT INFORMATION
  Report Type: Spontaneous
  Country: US (occurrence: US)
  Receive Date: 20130114
  Receipt Date: 20130201
  Transmission Date: 20140127
  Serious: No
  Sender: FDA-Public Use
  Company Number: US-PFIZER INC-2013013376

PATIENT
  Age: 63 Year
  Sex: Female

DRUGS (1)
  1. SUTENT [Suspect]
     Indication: RENAL CANCER
     Dosage: 37.5 MG, 1X/DAY
     Route: 048

REACTIONS (2)
  - Face oedema [Not Recovered/Not Resolved]
  - Psoriasis [Not Recovered/Not Resolved]
